FAERS Safety Report 9689490 (Version 1)
Quarter: 2013Q4

REPORT INFORMATION
  Report Type: Spontaneous
  Country: US (occurrence: US)
  Receive Date: 20131114
  Receipt Date: 20131114
  Transmission Date: 20140711
  Serious: No
  Sender: FDA-Public Use
  Company Number: US-009507513-1310USA011073

PATIENT
  Sex: Female

DRUGS (4)
  1. K-DUR [Suspect]
     Indication: GITELMAN^S SYNDROME
     Dosage: ^10-12 TABLETS A DAY 20MEQ^
     Route: 048
  2. K-DUR [Suspect]
     Indication: GITELMAN^S SYNDROME
     Dosage: UNK
     Route: 048
  3. KLOR-CON [Suspect]
     Indication: GITELMAN^S SYNDROME
     Dosage: UNK
  4. ALDACTONE TABLETS [Concomitant]

REACTIONS (4)
  - Dysphagia [Recovered/Resolved]
  - Food allergy [Unknown]
  - Adverse reaction [Unknown]
  - Adverse event [Unknown]
